FAERS Safety Report 4559837-0 (Version None)
Quarter: 2005Q1

REPORT INFORMATION
  Report Type: 
  Country: None (occurrence: None)
  Receive Date: 20050124
  Receipt Date: 20041018
  Transmission Date: 20050727
  Serious: Yes (Other)
  Sender: FDA-Public Use
  Company Number: US-MERCK-0410USA03988

PATIENT
  Age: 45 Year
  Sex: Female
  Weight: 104 kg

DRUGS (4)
  1. VIOXX [Suspect]
     Indication: HEADACHE
     Route: 048
     Dates: start: 20000510, end: 20041004
  2. VIOXX [Suspect]
     Indication: NECK INJURY
     Route: 048
     Dates: start: 20000510, end: 20041004
  3. NEURONTIN [Concomitant]
     Indication: NEURALGIA
     Route: 048
  4. VICOPROFEN [Concomitant]
     Indication: PAIN
     Route: 065

REACTIONS (5)
  - CONTUSION [None]
  - DYSPNOEA [None]
  - FLUID RETENTION [None]
  - HYPERTENSION [None]
  - OEDEMA PERIPHERAL [None]
